FAERS Safety Report 7951381-3 (Version None)
Quarter: 2011Q4

REPORT INFORMATION
  Report Type: 
  Country: None (occurrence: None)
  Receive Date: 20111201
  Receipt Date: 20111129
  Transmission Date: 20120403
  Serious: Yes (Death, Hospitalization)
  Sender: FDA-Public Use
  Company Number: AU-B.I. PHARMACEUTICALS,INC./RIDGEFIELD-2011-AU-02098AU

PATIENT
  Sex: Female
  Weight: 56 kg

DRUGS (10)
  1. LIPITOR [Concomitant]
     Dosage: 40 MG
  2. MOVIPREP [Concomitant]
  3. ACETAMINOPHEN [Concomitant]
     Dosage: 4000 MG
  4. DIGOXIN [Concomitant]
     Dosage: 125 MCG
  5. RHINOCORT [Concomitant]
     Dosage: 32 MCG/DOSE
  6. PRADAXA [Suspect]
     Indication: ATRIAL FIBRILLATION
     Dosage: 300 MG
     Dates: start: 20110901
  7. LASIX [Concomitant]
     Dosage: 20 MG
  8. NEO B12 [Concomitant]
     Dosage: 1000 MCG/ML
  9. OSTELIN [Concomitant]
     Dosage: 25 MCG
  10. METOPROLOL TARTRATE [Concomitant]
     Dosage: 100 MG

REACTIONS (3)
  - URINARY TRACT INFECTION [None]
  - PERIPHERAL EMBOLISM [None]
  - TRANSIENT ISCHAEMIC ATTACK [None]
